FAERS Safety Report 12937642 (Version 1)
Quarter: 2016Q4

REPORT INFORMATION
  Report Type: Spontaneous
  Country: US (occurrence: US)
  Receive Date: 20161114
  Receipt Date: 20161114
  Transmission Date: 20170207
  Serious: Yes (Life-Threatening)
  Sender: FDA-Public Use
  Company Number: US-SAGENTPRD-2016-US-000054

PATIENT
  Age: 11 Month
  Sex: 0

DRUGS (13)
  1. METHOTREXATE. [Concomitant]
     Active Substance: METHOTREXATE
  2. PEGASPARGASE [Concomitant]
     Active Substance: PEGASPARGASE
  3. ASPARAGINASE [Concomitant]
     Active Substance: ASPARAGINASE
  4. PREDNISONE. [Concomitant]
     Active Substance: PREDNISONE
  5. CYCLOPHOSPHAMIDE. [Concomitant]
     Active Substance: CYCLOPHOSPHAMIDE
  6. FILGRASTIM [Concomitant]
     Active Substance: FILGRASTIM
  7. DAUNORUBICIN [Concomitant]
     Active Substance: DAUNORUBICIN
  8. MERCAPTOPURINE. [Concomitant]
     Active Substance: MERCAPTOPURINE
  9. LEUCOVORIN CALCIUM FOR INJECTION [Suspect]
     Active Substance: LEUCOVORIN CALCIUM
     Dosage: UNKNOWN
  10. VINCRISTINE [Concomitant]
     Active Substance: VINCRISTINE
  11. ETOPOSIDE. [Concomitant]
     Active Substance: ETOPOSIDE
  12. CYTARABINE. [Concomitant]
     Active Substance: CYTARABINE
  13. HYDROCORTISONE. [Concomitant]
     Active Substance: HYDROCORTISONE

REACTIONS (8)
  - Sinusitis [None]
  - Parainfluenzae virus infection [Unknown]
  - Human herpesvirus 6 infection [Unknown]
  - Bacterial infection [None]
  - Viraemia [None]
  - Rhinorrhoea [Unknown]
  - Secondary immunodeficiency [Unknown]
  - Meningoencephalitis herpetic [Unknown]
